FAERS Safety Report 9393012 (Version 1)
Quarter: 2013Q3

REPORT INFORMATION
  Report Type: Spontaneous
  Country: US (occurrence: US)
  Receive Date: 20130710
  Receipt Date: 20130710
  Transmission Date: 20140515
  Serious: No
  Sender: FDA-Public Use
  Company Number: US-BAYER-2013-083039

PATIENT
  Sex: Female

DRUGS (4)
  1. AVELOX [Suspect]
     Indication: SINUSITIS
     Dosage: 400 MG, QD
     Route: 048
     Dates: start: 20130614, end: 20130622
  2. AVELOX [Suspect]
     Indication: SINUSITIS
     Dosage: 400 MG, QD
     Route: 048
     Dates: start: 20130702
  3. MUCINEX [Concomitant]
  4. ACETAMINOPHEN [Concomitant]

REACTIONS (5)
  - Oropharyngeal pain [None]
  - Malaise [None]
  - Chills [None]
  - Paraesthesia [None]
  - Drug ineffective [None]
